FAERS Safety Report 5604034-0 (Version None)
Quarter: 2008Q1

REPORT INFORMATION
  Report Type: 
  Country: None (occurrence: None)
  Receive Date: 20080128
  Receipt Date: 20080114
  Transmission Date: 20080703
  Serious: Yes (Hospitalization, Other)
  Sender: FDA-Public Use
  Company Number: PHBS2008JP00866

PATIENT
  Age: 35 Year
  Sex: Male

DRUGS (2)
  1. IMATINIB [Suspect]
     Indication: CHRONIC MYELOID LEUKAEMIA
     Dosage: 600 MG/D
     Route: 065
  2. DANAPAROID [Suspect]
     Dosage: 60 U/KG/D
     Route: 042

REACTIONS (17)
  - BLAST CRISIS IN MYELOGENOUS LEUKAEMIA [None]
  - CHROMOSOME ANALYSIS ABNORMAL [None]
  - DISSEMINATED INTRAVASCULAR COAGULATION [None]
  - FIBRIN D DIMER INCREASED [None]
  - FIBRIN DEGRADATION PRODUCTS [None]
  - HAEMORRHAGIC DIATHESIS [None]
  - HYPOVOLAEMIC SHOCK [None]
  - MALIGNANT NEOPLASM PROGRESSION [None]
  - PETECHIAE [None]
  - PLASMIN INHIBITOR INCREASED [None]
  - PLATELET COUNT DECREASED [None]
  - PROTHROMBIN TIME PROLONGED [None]
  - PULMONARY OEDEMA [None]
  - PYREXIA [None]
  - SPLENOMEGALY [None]
  - THROMBIN-ANTITHROMBIN III COMPLEX INCREASED [None]
  - WHITE BLOOD CELL COUNT DECREASED [None]
